FAERS Safety Report 7545712-6 (Version None)
Quarter: 2011Q2

REPORT INFORMATION
  Report Type: 
  Country: None (occurrence: None)
  Receive Date: 20110614
  Receipt Date: 20110606
  Transmission Date: 20111010
  Serious: Yes (Death)
  Sender: FDA-Public Use
  Company Number: US-AMGEN-USASP2011028544

PATIENT
  Age: 87 Year
  Sex: Male

DRUGS (2)
  1. IMMUNOGLOBULINS [Concomitant]
     Route: 042
  2. NPLATE [Suspect]
     Indication: IDIOPATHIC THROMBOCYTOPENIC PURPURA
     Dosage: 1 A?G/KG, UNK
     Dates: start: 20110520, end: 20110520

REACTIONS (2)
  - ACUTE MYELOID LEUKAEMIA [None]
  - INFECTION [None]
